FAERS Safety Report 7064089-6 (Version None)
Quarter: 2010Q4

REPORT INFORMATION
  Report Type: 
  Country: None (occurrence: None)
  Receive Date: 20101027
  Receipt Date: 20101015
  Transmission Date: 20110411
  Serious: Yes (Hospitalization)
  Sender: FDA-Public Use
  Company Number: US-ELI_LILLY_AND_COMPANY-US201010003942

PATIENT
  Sex: Female
  Weight: 80.726 kg

DRUGS (5)
  1. BYETTA [Suspect]
     Indication: TYPE 2 DIABETES MELLITUS
     Dosage: 5 UG, 2/D
     Route: 058
  2. BYETTA [Suspect]
     Dosage: 10 UG, 2/D
     Route: 058
  3. METFORMIN [Concomitant]
     Indication: TYPE 2 DIABETES MELLITUS
     Dosage: 1000 MG, 2/D
  4. LIZINOPRIL [Concomitant]
     Indication: TYPE 2 DIABETES MELLITUS
     Dosage: 5 MG, UNK
     Route: 048
  5. LEVOTHYROXINE [Concomitant]
     Dosage: 0.075 MG, DAILY (1/D)
     Route: 048

REACTIONS (8)
  - BLADDER REPAIR [None]
  - HYSTERECTOMY [None]
  - NAUSEA [None]
  - PAIN [None]
  - RECTOCELE REPAIR [None]
  - STRESS URINARY INCONTINENCE [None]
  - VISUAL IMPAIRMENT [None]
  - VOMITING [None]
